FAERS Safety Report 4319168-0 (Version None)
Quarter: 2004Q1

REPORT INFORMATION
  Report Type: 
  Country: None (occurrence: None)
  Receive Date: 20040316
  Receipt Date: 20040301
  Transmission Date: 20041129
  Serious: Yes (Hospitalization)
  Sender: FDA-Public Use
  Company Number: FR_040303674

PATIENT
  Age: 43 Year
  Sex: Female

DRUGS (1)
  1. ZYPREXA [Suspect]
     Dosage: UNK
     Route: 065
     Dates: start: 20030901, end: 20040211

REACTIONS (5)
  - ACUTE RESPIRATORY DISTRESS SYNDROME [None]
  - DIABETIC KETOACIDOSIS [None]
  - HYPERGLYCAEMIA [None]
  - PANCREATITIS [None]
  - RENAL FAILURE [None]
